FAERS Safety Report 5850527-0 (Version None)
Quarter: 2008Q3

REPORT INFORMATION
  Report Type: 
  Country: None (occurrence: None)
  Receive Date: 20080820
  Receipt Date: 20080807
  Transmission Date: 20090109
  Serious: Yes (Life-Threatening, Other)
  Sender: FDA-Public Use
  Company Number: GB-RANBAXY-2008RR-14425

PATIENT

DRUGS (13)
  1. VERAPAMIL [Suspect]
     Indication: ATRIAL FIBRILLATION
     Dosage: 160 MG, QD
     Route: 048
     Dates: start: 20080328, end: 20080331
  2. ASPIRIN [Concomitant]
     Indication: MYOCARDIAL ISCHAEMIA
     Dosage: 75 MG, UNK
     Route: 048
  3. DIGOXIN [Concomitant]
     Dosage: 250 MG, UNK
     Route: 048
     Dates: start: 20080325
  4. ENOXAPARIN SODIUM [Concomitant]
     Dosage: 120 MG, UNK
     Route: 058
  5. FELODIPINE [Concomitant]
     Indication: HYPERTENSION
     Dosage: 10 MG, UNK
     Route: 048
  6. FUROSEMIDE [Concomitant]
     Indication: HYPERTENSION
     Dosage: 40 MG, BID
     Route: 048
  7. HUMULIN M3 [Concomitant]
     Indication: DIABETES MELLITUS
     Route: 058
  8. ACETAMINOPHEN [Concomitant]
     Indication: PAIN
     Dosage: 1 G, UNK
     Route: 048
  9. SIMVASTATIN [Concomitant]
     Indication: BLOOD CHOLESTEROL INCREASED
     Dosage: 40 MG, QD
     Route: 048
  10. TAMSULOSIN HCL [Concomitant]
     Indication: BENIGN PROSTATIC HYPERPLASIA
     Dosage: 400 UG, UNK
     Route: 048
  11. INSULIN HUMAN [Concomitant]
     Dosage: 32 UNITS/14 UNITS
  12. SALBUTAMOL [Concomitant]
     Indication: ANGIOEDEMA
     Dosage: 5 MG, UNK
     Route: 055
  13. SALBUTAMOL [Concomitant]
     Indication: DYSPNOEA

REACTIONS (4)
  - ANGIOEDEMA [None]
  - SWELLING FACE [None]
  - TACHYCARDIA [None]
  - WHEEZING [None]
